FAERS Safety Report 8910776 (Version 1)
Quarter: 2012Q4

REPORT INFORMATION
  Report Type: 
  Country: US (occurrence: US)
  Receive Date: 20121116
  Receipt Date: 20121116
  Transmission Date: 20130627
  Serious: Yes (Hospitalization)
  Sender: FDA-Public Use
  Company Number: US-AMGEN-USASP2012072812

PATIENT
  Age: 54 Year
  Sex: Male

DRUGS (1)
  1. ENBREL [Suspect]
     Indication: RHEUMATOID ARTHRITIS
     Dosage: 50 mg, qwk
     Dates: start: 19941015

REACTIONS (11)
  - Arthralgia [Not Recovered/Not Resolved]
  - Ankle fracture [Recovered/Resolved]
  - Meniscus injury [Recovered/Resolved]
  - Rotator cuff syndrome [Recovered/Resolved]
  - Staphylococcal infection [Recovered/Resolved]
  - Wound infection [Recovered/Resolved]
  - Post procedural infection [Recovered/Resolved]
  - Fall [Recovered/Resolved]
  - Tooth repair [Recovered/Resolved]
  - Pain [Not Recovered/Not Resolved]
  - Generalised oedema [Not Recovered/Not Resolved]
